FAERS Safety Report 14593721 (Version 1)
Quarter: 2018Q1

REPORT INFORMATION
  Report Type: Spontaneous
  Country: US (occurrence: US)
  Receive Date: 20180302
  Receipt Date: 20180302
  Transmission Date: 20180509
  Serious: No
  Sender: FDA-Public Use
  Company Number: US-AKRON, INC.-2042875

PATIENT
  Sex: Male

DRUGS (1)
  1. VALPROIC ACID. [Suspect]
     Active Substance: VALPROIC ACID

REACTIONS (4)
  - Eye irritation [Unknown]
  - Throat irritation [Unknown]
  - Lacrimation increased [Unknown]
  - Dry mouth [Unknown]
